FAERS Safety Report 9740941 (Version 4)
Quarter: 2014Q1

REPORT INFORMATION
  Report Type: Spontaneous
  Country: US (occurrence: US)
  Receive Date: 20131209
  Receipt Date: 20140128
  Transmission Date: 20141002
  Serious: No
  Sender: FDA-Public Use
  Company Number: US-BIOGENIDEC-2013BI100588

PATIENT
  Age: 63 Year
  Sex: Female
  Weight: 59 kg

DRUGS (18)
  1. TECFIDERA [Suspect]
     Indication: MULTIPLE SCLEROSIS
     Route: 048
  2. TECFIDERA [Suspect]
     Indication: MULTIPLE SCLEROSIS
     Route: 048
     Dates: start: 20131007, end: 20131010
  3. TECFIDERA [Suspect]
     Indication: MULTIPLE SCLEROSIS
     Route: 048
     Dates: start: 20131022
  4. TECFIDERA [Suspect]
     Indication: MULTIPLE SCLEROSIS
     Route: 048
  5. TECFIDERA [Suspect]
     Indication: MULTIPLE SCLEROSIS
     Route: 048
  6. TECFIDERA [Suspect]
     Indication: MULTIPLE SCLEROSIS
  7. TECFIDERA [Suspect]
     Indication: MULTIPLE SCLEROSIS
  8. TECFIDERA [Suspect]
     Indication: MULTIPLE SCLEROSIS
  9. BABY ASPIRIN CHW [Concomitant]
  10. BYSTOLIC [Concomitant]
  11. RAMIPRIL [Concomitant]
  12. PRAVASTATIN [Concomitant]
  13. ELIQUIS [Concomitant]
  14. ESTRACE [Concomitant]
  15. CLOBETASOL [Concomitant]
  16. TYLENOL [Concomitant]
  17. ZOLPIDEM [Concomitant]
  18. PRILOSEC [Concomitant]

REACTIONS (14)
  - Asthenia [Unknown]
  - General symptom [Unknown]
  - Prescribed underdose [Not Recovered/Not Resolved]
  - Nausea [Recovered/Resolved]
  - Malaise [Not Recovered/Not Resolved]
  - Myalgia [Not Recovered/Not Resolved]
  - Rhinorrhoea [Not Recovered/Not Resolved]
  - Paraesthesia [Recovered/Resolved]
  - Flushing [Recovered/Resolved]
  - Feeling hot [Not Recovered/Not Resolved]
  - Abdominal pain [Not Recovered/Not Resolved]
  - Vomiting [Recovered/Resolved]
  - Abdominal discomfort [Not Recovered/Not Resolved]
  - Dyspepsia [Unknown]
